FAERS Safety Report 6780290-0 (Version None)
Quarter: 2010Q2

REPORT INFORMATION
  Report Type: 
  Country: None (occurrence: None)
  Receive Date: 20100618
  Receipt Date: 20100611
  Transmission Date: 20101027
  Serious: Yes (Hospitalization)
  Sender: FDA-Public Use
  Company Number: US-JNJFOC-20100503954

PATIENT
  Sex: Female
  Weight: 6.35 kg

DRUGS (2)
  1. CONCENTRATED TYLENOL INFANT DROPS [Suspect]
     Indication: PYREXIA
     Route: 048
  2. CONCENTRATED TYLENOL INFANT DROPS [Suspect]
     Indication: IMMUNISATION
     Route: 048

REACTIONS (6)
  - BACTERIAL INFECTION [None]
  - DRUG INEFFECTIVE [None]
  - EATING DISORDER [None]
  - INSOMNIA [None]
  - PRODUCT QUALITY ISSUE [None]
  - PYREXIA [None]
